FAERS Safety Report 7036168-0 (Version None)
Quarter: 2010Q4

REPORT INFORMATION
  Report Type: 
  Country: None (occurrence: None)
  Receive Date: 20101008
  Receipt Date: 20100512
  Transmission Date: 20110411
  Serious: No
  Sender: FDA-Public Use
  Company Number: US-BRISTOL-MYERS SQUIBB COMPANY-15105760

PATIENT
  Sex: Male

DRUGS (1)
  1. AVAPRO [Suspect]
     Dosage: TABLET.

REACTIONS (3)
  - DYSGEUSIA [None]
  - DYSPHAGIA [None]
  - VOMITING [None]
